FAERS Safety Report 18087887 (Version 7)
Quarter: 2021Q3

REPORT INFORMATION
  Report Type: Report from Study
  Country: DE (occurrence: DE)
  Receive Date: 20200729
  Receipt Date: 20210906
  Transmission Date: 20211014
  Serious: Yes (Hospitalization, Other)
  Sender: FDA-Public Use
  Company Number: DE-TAKEDA-2020TUS032426

PATIENT
  Sex: Female

DRUGS (5)
  1. FERACCRU [Concomitant]
     Active Substance: FERRIC MALTOL
     Dosage: 30 MILLIGRAM
  2. VEDOLIZUMAB [Suspect]
     Active Substance: VEDOLIZUMAB
     Indication: COLITIS ULCERATIVE
     Dosage: UNK
     Route: 042
     Dates: start: 20170614, end: 20171115
  3. GOLIMUMAB [Concomitant]
     Active Substance: GOLIMUMAB
     Dosage: UNK
     Dates: start: 20180112, end: 20180112
  4. BETNESOL [Concomitant]
     Dosage: UNK
     Route: 054
  5. GOLIMUMAB [Concomitant]
     Active Substance: GOLIMUMAB
     Dosage: UNK
     Dates: start: 202005

REACTIONS (2)
  - Colitis ulcerative [Recovered/Resolved with Sequelae]
  - Arthralgia [Not Recovered/Not Resolved]

NARRATIVE: CASE EVENT DATE: 20200713
